FAERS Safety Report 13007137 (Version 1)
Quarter: 2016Q4

REPORT INFORMATION
  Report Type: Spontaneous
  Country: US (occurrence: US)
  Receive Date: 20161207
  Receipt Date: 20161207
  Transmission Date: 20170207
  Serious: No
  Sender: FDA-Public Use
  Company Number: US-MISSION PHARMACAL COMPANY-1060538

PATIENT
  Age: 25 Year
  Sex: Female

DRUGS (1)
  1. THIOLA [Suspect]
     Active Substance: TIOPRONIN
     Indication: URETEROLITHIASIS
     Route: 065
     Dates: start: 20140821

REACTIONS (6)
  - Fatigue [Unknown]
  - Loss of consciousness [Unknown]
  - Chest pain [Unknown]
  - Asthenia [Unknown]
  - Hypoaesthesia [Unknown]
  - Muscular weakness [Unknown]
